FAERS Safety Report 5613180-7 (Version None)
Quarter: 2008Q1

REPORT INFORMATION
  Report Type: 
  Country: None (occurrence: None)
  Receive Date: 20080129
  Receipt Date: 20071128
  Transmission Date: 20080703
  Serious: Yes (Hospitalization)
  Sender: FDA-Public Use
  Company Number: 2007S1012451

PATIENT
  Age: 39 Year
  Sex: Male

DRUGS (9)
  1. AMLODIPINE [Suspect]
     Indication: DRUG USE FOR UNKNOWN INDICATION
     Dosage: 280 MG
  2. ASPIRIN [Suspect]
     Indication: DRUG USE FOR UNKNOWN INDICATION
     Dosage: 975 MG
  3. DOXAZOSIN MESYLATE [Suspect]
     Indication: DRUG USE FOR UNKNOWN INDICATION
     Dosage: 112 MG
  4. METFORMIN HCL [Suspect]
     Indication: DRUG USE FOR UNKNOWN INDICATION
     Dosage: 6500 MG
  5. EPINEPHRINE [Concomitant]
  6. CALCIUM (CALCIUM) [Concomitant]
  7. DEXTROSE [Concomitant]
  8. NOREPINEPHRINE BITARTRATE [Concomitant]
  9. POTASSIUM (POTASSIUM) [Concomitant]

REACTIONS (4)
  - DRUG TOXICITY [None]
  - HYPOGLYCAEMIA [None]
  - HYPOTENSION [None]
  - OVERDOSE [None]
